FAERS Safety Report 24269170 (Version 1)
Quarter: 2024Q3

REPORT INFORMATION
  Report Type: Spontaneous
  Country: US (occurrence: None)
  Receive Date: 20240830
  Receipt Date: 20240830
  Transmission Date: 20241016
  Serious: Yes (Hospitalization)
  Sender: Public
  Company Number: None

PATIENT
  Age: 38 Year
  Sex: Female
  Weight: 85.5 kg

DRUGS (1)
  1. JEUVEAU [Suspect]
     Active Substance: PRABOTULINUMTOXINA-XVFS
     Indication: Skin cosmetic procedure
     Route: 058
     Dates: start: 20240214, end: 20240214

REACTIONS (12)
  - Panic attack [None]
  - Dizziness [None]
  - Vision blurred [None]
  - Dissociation [None]
  - Hypoaesthesia [None]
  - Speech disorder [None]
  - Eye movement disorder [None]
  - Thirst [None]
  - Feeling abnormal [None]
  - Near death experience [None]
  - Hypoaesthesia [None]
  - Gait disturbance [None]

NARRATIVE: CASE EVENT DATE: 20240228
